FAERS Safety Report 7808218-2 (Version None)
Quarter: 2011Q4

REPORT INFORMATION
  Report Type: 
  Country: None (occurrence: None)
  Receive Date: 20111011
  Receipt Date: 20110924
  Transmission Date: 20120403
  Serious: Yes (Death, Hospitalization, Other)
  Sender: FDA-Public Use
  Company Number: PHHY2011GR87177

PATIENT
  Age: 58 Year
  Sex: Female

DRUGS (6)
  1. CYCLOPHOSPHAMIDE [Concomitant]
     Dosage: 50 MG, BID
     Route: 048
  2. DANAZOL [Concomitant]
  3. IMATINIB MESYLATE [Suspect]
     Dosage: 400 MG, DAILY
     Route: 048
     Dates: start: 20070201
  4. CYCLOPHOSPHAMIDE [Concomitant]
     Dosage: 500 MG, UNK
     Route: 042
  5. VINCRISTINE [Concomitant]
  6. METHYLPREDNISOLONE [Concomitant]
     Dosage: 48 MG, DAILY
     Route: 048

REACTIONS (8)
  - GASTROINTESTINAL HAEMORRHAGE [None]
  - MYELODYSPLASTIC SYNDROME [None]
  - WHITE BLOOD CELL COUNT INCREASED [None]
  - GENE MUTATION IDENTIFICATION TEST POSITIVE [None]
  - HAEMATOCRIT INCREASED [None]
  - LEUKOPENIA [None]
  - THROMBOCYTOPENIA [None]
  - LUNG INFECTION [None]
